FAERS Safety Report 18997999 (Version 1)
Quarter: 2021Q1

REPORT INFORMATION
  Report Type: Spontaneous
  Country: IN (occurrence: IN)
  Receive Date: 20210311
  Receipt Date: 20210311
  Transmission Date: 20210420
  Serious: Yes (Death, Other)
  Sender: FDA-Public Use
  Company Number: NVSC2021IN055362

PATIENT
  Age: 70 Year
  Sex: Male

DRUGS (1)
  1. DICLOFENAC [Suspect]
     Active Substance: DICLOFENAC
     Indication: VIRAL INFECTION
     Dosage: UNK
     Route: 048

REACTIONS (2)
  - Product use in unapproved indication [Unknown]
  - Toxic epidermal necrolysis [Fatal]
